FAERS Safety Report 8409735-7 (Version None)
Quarter: 2012Q2

REPORT INFORMATION
  Report Type: 
  Country: None (occurrence: None)
  Receive Date: 20120529
  Receipt Date: 20120520
  Transmission Date: 20120825
  Serious: Yes (Other)
  Sender: FDA-Public Use
  Company Number: 2012050120

PATIENT
  Sex: Male

DRUGS (3)
  1. FELBATOL [Suspect]
     Indication: MYOCLONIC EPILEPSY
     Dosage: 900 MG, ONCE DAILY IN THE AM, ORAL; 600 ONCE DAILY IN THE PM. ORAL
     Route: 048
     Dates: start: 19900101
  2. FELBATOL [Suspect]
     Indication: MYOCLONIC EPILEPSY
     Dosage: 900 MG, ONCE DAILY IN THE AM, ORAL; 600 ONCE DAILY IN THE PM. ORAL
     Route: 048
     Dates: start: 19900101
  3. BANZEL (RUFINAMIDE) [Concomitant]

REACTIONS (3)
  - DECREASED APPETITE [None]
  - GASTROOESOPHAGEAL REFLUX DISEASE [None]
  - GRAND MAL CONVULSION [None]
